FAERS Safety Report 18906245 (Version 2)
Quarter: 2021Q1

REPORT INFORMATION
  Report Type: Report from Study
  Country: US (occurrence: US)
  Receive Date: 20210217
  Receipt Date: 20210218
  Transmission Date: 20210420
  Serious: Yes (Hospitalization)
  Sender: FDA-Public Use
  Company Number: US-JNJFOC-20210226328

PATIENT
  Age: 16 Year
  Sex: Male
  Weight: 71.2 kg

DRUGS (1)
  1. INFLIXIMAB, RECOMBINANT [Suspect]
     Active Substance: INFLIXIMAB
     Indication: INFLAMMATORY BOWEL DISEASE
     Route: 042
     Dates: start: 20181004, end: 20181011

REACTIONS (1)
  - Pouchitis [Recovered/Resolved]

NARRATIVE: CASE EVENT DATE: 20210109
